FAERS Safety Report 9010905 (Version 1)
Quarter: 2013Q1

REPORT INFORMATION
  Report Type: Spontaneous
  Country: US (occurrence: US)
  Receive Date: 20130109
  Receipt Date: 20130109
  Transmission Date: 20140127
  Serious: Yes (Death)
  Sender: FDA-Public Use
  Company Number: US-OTSUKA-US-2013-10009

PATIENT
  Age: 44 Year
  Sex: Female

DRUGS (21)
  1. SAMSCA [Suspect]
     Indication: PRODUCT USED FOR UNKNOWN INDICATION
     Dosage: 30 MG MILLIGRAM(S), UNK
     Route: 048
     Dates: end: 20121226
  2. CALCIUM [Concomitant]
  3. VITAMIN D [Concomitant]
  4. VITAMIN B6 [Concomitant]
  5. REGLAN [Concomitant]
  6. CELEXA [Concomitant]
  7. MIRALAX [Concomitant]
  8. ALDACTONE [Concomitant]
  9. SENNA PLUS [Concomitant]
  10. MELATONIN [Concomitant]
  11. ZOFRAN [Concomitant]
  12. LORAZEPAM [Concomitant]
  13. BENADRYL [Concomitant]
  14. BUMEX [Concomitant]
  15. PROTONIX [Concomitant]
  16. SCOPOLAMINE [Concomitant]
  17. ATROPINE [Concomitant]
  18. SODIUM CHLORIDE [Concomitant]
  19. CARAFATE [Concomitant]
  20. THORAZINE [Concomitant]
  21. ZYPREXA [Suspect]

REACTIONS (1)
  - Death [Fatal]
